FAERS Safety Report 21507733 (Version 1)
Quarter: 2022Q4

REPORT INFORMATION
  Report Type: Spontaneous
  Country: US (occurrence: None)
  Receive Date: 20221020
  Receipt Date: 20221020
  Transmission Date: 20230113
  Serious: Yes (Other)
  Sender: FDA-Public Use
  Company Number: None

PATIENT
  Age: 6 Year
  Sex: Female
  Weight: 15.4 kg

DRUGS (1)
  1. GLYCERIN\PHENOL\SODIUM CHLORIDE [Suspect]
     Active Substance: GLYCERIN\PHENOL\SODIUM CHLORIDE
     Indication: Allergy test
     Route: 003

REACTIONS (3)
  - Product quality issue [None]
  - Allergy test positive [None]
  - Product quality issue [None]

NARRATIVE: CASE EVENT DATE: 20221011
